FAERS Safety Report 20471024 (Version 2)
Quarter: 2022Q2

REPORT INFORMATION
  Report Type: Spontaneous
  Country: US (occurrence: US)
  Receive Date: 20220214
  Receipt Date: 20220506
  Transmission Date: 20220720
  Serious: Yes (Other)
  Sender: FDA-Public Use
  Company Number: US-G1-000421

PATIENT
  Age: 76 Year
  Sex: Female

DRUGS (1)
  1. COSELA [Suspect]
     Active Substance: TRILACICLIB DIHYDROCHLORIDE
     Indication: Infection prophylaxis
     Dosage: ON 14-DEC-2021 SUBJECT RECEIVED COSELA VIA INTRAVENOUS ROUTE?ON 21-DEC-2021 SUBJECT RECEIVED COSE...
     Dates: start: 20211214, end: 20211221

REACTIONS (6)
  - Infusion site pain [Unknown]
  - Cardiac disorder [Unknown]
  - Chest pain [Unknown]
  - Dizziness [Unknown]
  - Chest discomfort [Unknown]
  - Loss of consciousness [Unknown]

NARRATIVE: CASE EVENT DATE: 20211214
